FAERS Safety Report 23446958 (Version 1)
Quarter: 2024Q1

REPORT INFORMATION
  Report Type: Spontaneous
  Country: CO (occurrence: CO)
  Receive Date: 20240126
  Receipt Date: 20240126
  Transmission Date: 20240409
  Serious: Yes (Life-Threatening, Hospitalization, Disabling, Other)
  Sender: FDA-Public Use
  Company Number: CO-ASTELLAS-2024EU000640

PATIENT
  Age: 7 Decade
  Sex: Male

DRUGS (4)
  1. TACROLIMUS [Suspect]
     Active Substance: TACROLIMUS
     Indication: Liver transplant
     Route: 065
  2. TACROLIMUS [Suspect]
     Active Substance: TACROLIMUS
     Route: 065
  3. PREDNISONE [Concomitant]
     Active Substance: PREDNISONE
     Indication: Liver transplant
     Route: 065
  4. MYCOPHENOLATE MOFETIL [Concomitant]
     Active Substance: MYCOPHENOLATE MOFETIL
     Indication: Liver transplant
     Route: 065

REACTIONS (7)
  - Guillain-Barre syndrome [Recovering/Resolving]
  - Respiratory failure [Recovering/Resolving]
  - Cytomegalovirus infection [Recovered/Resolved]
  - Staphylococcal infection [Recovering/Resolving]
  - Staphylococcus test [Recovering/Resolving]
  - Staphylococcal bacteraemia [Recovering/Resolving]
  - Gastrointestinal infection [Recovered/Resolved]
